FAERS Safety Report 8349854-7 (Version None)
Quarter: 2012Q2

REPORT INFORMATION
  Report Type: 
  Country: None (occurrence: None)
  Receive Date: 20120510
  Receipt Date: 20120430
  Transmission Date: 20120825
  Serious: Yes (Death)
  Sender: FDA-Public Use
  Company Number: FR-SANOFI-AVENTIS-2012SA002095

PATIENT
  Age: 79 Year
  Sex: Female

DRUGS (11)
  1. ATORVASTATIN [Concomitant]
  2. LOVENOX [Suspect]
     Indication: ACUTE CORONARY SYNDROME
     Route: 058
     Dates: start: 20111208
  3. TERBUTALINE [Concomitant]
     Indication: BRONCHITIS
     Route: 055
  4. BISOPROLOL FUMARATE [Concomitant]
     Route: 048
  5. ASPIRIN [Suspect]
     Route: 048
  6. LASIX [Concomitant]
     Route: 048
  7. PLAVIX [Suspect]
     Route: 048
  8. NEXIUM [Concomitant]
     Route: 048
  9. PREVISCAN [Suspect]
     Route: 048
     Dates: end: 20111213
  10. IPRATROPIUM BROMIDE [Concomitant]
     Indication: BRONCHITIS
     Route: 055
  11. RAMIPRIL [Concomitant]
     Route: 048

REACTIONS (4)
  - DRUG INTERACTION [None]
  - ANAEMIA [None]
  - SHOCK HAEMORRHAGIC [None]
  - RETROPERITONEAL HAEMATOMA [None]
